FAERS Safety Report 7994964-7 (Version None)
Quarter: 2011Q4

REPORT INFORMATION
  Report Type: 
  Country: None (occurrence: None)
  Receive Date: 20111220
  Receipt Date: 20111006
  Transmission Date: 20120403
  Serious: No
  Sender: FDA-Public Use
  Company Number: US-MYLANLABS-2011S1012208

PATIENT
  Age: 71 Year
  Sex: Female

DRUGS (2)
  1. LETROZOLE [Suspect]
     Indication: BREAST CANCER
     Route: 048
     Dates: start: 20110601, end: 20110610
  2. SYNTHROID [Concomitant]
     Indication: THYROID DISORDER
     Route: 048

REACTIONS (7)
  - RASH ERYTHEMATOUS [None]
  - CONSTIPATION [None]
  - HOT FLUSH [None]
  - HEADACHE [None]
  - BONE PAIN [None]
  - HYPERHIDROSIS [None]
  - REACTION TO DRUG EXCIPIENTS [None]
